FAERS Safety Report 12634871 (Version 1)
Quarter: 2016Q3

REPORT INFORMATION
  Report Type: Spontaneous
  Country: US (occurrence: None)
  Receive Date: 20160808
  Receipt Date: 20160808
  Transmission Date: 20161109
  Serious: Yes (Other)
  Sender: FDA-Public Use
  Company Number: None

PATIENT
  Age: 69 Year
  Sex: Female
  Weight: 49.9 kg

DRUGS (7)
  1. VITAMIN B12 [Concomitant]
     Active Substance: CYANOCOBALAMIN
  2. DEXILANT [Concomitant]
     Active Substance: DEXLANSOPRAZOLE
  3. CALCIUM [Concomitant]
     Active Substance: CALCIUM
  4. FENOFIBRATE. [Concomitant]
     Active Substance: FENOFIBRATE
  5. PREDNISONE. [Concomitant]
     Active Substance: PREDNISONE
  6. SIMPONI ARIA [Suspect]
     Active Substance: GOLIMUMAB
     Indication: RHEUMATOID ARTHRITIS
     Dosage: BI MONTHLY INFUSION
     Dates: start: 20160412, end: 20160519
  7. VITAMIN D [Concomitant]
     Active Substance: CHOLECALCIFEROL

REACTIONS (1)
  - Alopecia [None]

NARRATIVE: CASE EVENT DATE: 20160523
